FAERS Safety Report 6018120-7 (Version None)
Quarter: 2008Q4

REPORT INFORMATION
  Report Type: 
  Country: None (occurrence: None)
  Receive Date: 20081223
  Receipt Date: 20081216
  Transmission Date: 20090506
  Serious: Yes (Death, Other)
  Sender: FDA-Public Use
  Company Number: JP-GENENTECH-274165

PATIENT
  Age: 70 Year
  Sex: Male

DRUGS (3)
  1. ACTIVASE [Suspect]
     Indication: PULMONARY EMBOLISM
     Dosage: 400000 U, X2
  2. UROKINASE [Suspect]
     Indication: PULMONARY EMBOLISM
     Dosage: 240000 U, UNK
  3. HEPARIN [Suspect]
     Indication: PULMONARY EMBOLISM
     Dosage: 20000-30000 U, UNK
     Route: 042

REACTIONS (3)
  - BRAIN HERNIATION [None]
  - CARDIOGENIC SHOCK [None]
  - HAEMORRHAGE INTRACRANIAL [None]
